FAERS Safety Report 7505951-7 (Version None)
Quarter: 2011Q2

REPORT INFORMATION
  Report Type: 
  Country: None (occurrence: None)
  Receive Date: 20110422
  Receipt Date: 20100813
  Transmission Date: 20111010
  Serious: Yes (Hospitalization, Other)
  Sender: FDA-Public Use
  Company Number: AE 2010-159

PATIENT
  Age: 40 Year
  Sex: Female
  Weight: 74.8435 kg

DRUGS (4)
  1. SAPHRIS [Concomitant]
  2. NAMEDA [Concomitant]
  3. LEXAPRO [Concomitant]
  4. FAZACLO ODT [Suspect]
     Indication: SCHIZOPHRENIA
     Dosage: 300 MG DAILY PO
     Route: 048
     Dates: start: 20100607, end: 20100712

REACTIONS (2)
  - AGRANULOCYTOSIS [None]
  - LEUKOPENIA [None]
